FAERS Safety Report 7762228-2 (Version None)
Quarter: 2011Q3

REPORT INFORMATION
  Report Type: 
  Country: None (occurrence: None)
  Receive Date: 20110920
  Receipt Date: 20110915
  Transmission Date: 20111222
  Serious: Yes (Hospitalization, Other)
  Sender: FDA-Public Use
  Company Number: AR-PFIZER INC-2011218391

PATIENT
  Age: 62 Year
  Sex: Male

DRUGS (2)
  1. VARENICLINE TARTRATE [Suspect]
     Indication: SMOKING CESSATION THERAPY
     Dosage: 2 MG, 1X/DAY
     Route: 048
     Dates: start: 20100301, end: 20100801
  2. NICOTINE [Concomitant]
     Dosage: UNK
     Route: 062

REACTIONS (5)
  - DYSLALIA [None]
  - DEPERSONALISATION [None]
  - PANIC ATTACK [None]
  - GAIT DISTURBANCE [None]
  - TOXICITY TO VARIOUS AGENTS [None]
